FAERS Safety Report 23714503 (Version 2)
Quarter: 2024Q2

REPORT INFORMATION
  Report Type: Report from Study
  Country: US (occurrence: US)
  Receive Date: 20240406
  Receipt Date: 20240430
  Transmission Date: 20240716
  Serious: Yes (Hospitalization, Other)
  Sender: FDA-Public Use
  Company Number: US-JNJFOC-20240320259

PATIENT
  Age: 15 Month
  Sex: Female
  Weight: 4.1 kg

DRUGS (3)
  1. TRACLEER [Suspect]
     Active Substance: BOSENTAN
     Indication: Pulmonary hypertension
     Route: 048
     Dates: start: 20230315
  2. TRACLEER [Suspect]
     Active Substance: BOSENTAN
     Indication: Pulmonary hypertension
     Route: 048
     Dates: start: 20230315
  3. SILDENAFIL CITRATE [Concomitant]
     Active Substance: SILDENAFIL CITRATE
     Indication: Pulmonary hypertension
     Route: 048
     Dates: start: 20230215

REACTIONS (6)
  - Pneumonia [Unknown]
  - Failure to thrive [Unknown]
  - Bronchopulmonary dysplasia [Unknown]
  - Chronic respiratory failure [Unknown]
  - Respiratory tract infection viral [Unknown]
  - Off label use [Unknown]

NARRATIVE: CASE EVENT DATE: 20240205
